FAERS Safety Report 9352180 (Version 1)
Quarter: 2013Q2

REPORT INFORMATION
  Report Type: Spontaneous
  Country: NL (occurrence: NL)
  Receive Date: 20130617
  Receipt Date: 20130617
  Transmission Date: 20140414
  Serious: Yes (Life-Threatening)
  Sender: FDA-Public Use
  Company Number: NL-PFIZER INC-2013181737

PATIENT
  Age: 26 Year
  Sex: Female
  Weight: 61 kg

DRUGS (3)
  1. EFEXOR XR [Suspect]
     Indication: DEPRESSION
     Dosage: 112.5 MG, 1X/DAY
     Dates: start: 20060130, end: 20111228
  2. EFEXOR XR [Suspect]
     Dosage: 75 MG, 1X/DAY
  3. EFEXOR XR [Suspect]
     Dosage: 37.5 MG, 1X/DAY

REACTIONS (3)
  - Hypomania [Recovered/Resolved with Sequelae]
  - Mania [Recovered/Resolved with Sequelae]
  - Bipolar disorder [Unknown]
